FAERS Safety Report 5924007-8 (Version None)
Quarter: 2008Q4

REPORT INFORMATION
  Report Type: 
  Country: None (occurrence: None)
  Receive Date: 20081020
  Receipt Date: 20081009
  Transmission Date: 20090506
  Serious: Yes (Other)
  Sender: FDA-Public Use
  Company Number: PHEH2008US09078

PATIENT
  Age: 82 Year
  Sex: Female
  Weight: 60.317 kg

DRUGS (1)
  1. RECLAST [Suspect]
     Indication: OSTEOPOROSIS
     Dosage: 5 MG, YEARLY
     Dates: start: 20080930, end: 20080930

REACTIONS (3)
  - BLOOD PRESSURE INCREASED [None]
  - SWOLLEN TONGUE [None]
  - VISION BLURRED [None]
